FAERS Safety Report 8223278-5 (Version None)
Quarter: 2012Q1

REPORT INFORMATION
  Report Type: 
  Country: None (occurrence: None)
  Receive Date: 20120321
  Receipt Date: 20120307
  Transmission Date: 20120608
  Serious: Yes (Hospitalization, Other)
  Sender: FDA-Public Use
  Company Number: US-ROCHE-1047900

PATIENT
  Age: 61 Year
  Sex: Male

DRUGS (3)
  1. CETUXIMAB [Suspect]
     Indication: HEAD AND NECK CANCER
     Dosage: LAST DOSE PRIOR TO SAE 15/FEB/2012
     Dates: start: 20120111
  2. AVASTIN [Suspect]
     Indication: HEAD AND NECK CANCER
     Dosage: LAST DOSE PRIOR TO SAE 22/FEB/2012
     Dates: start: 20120111
  3. CISPLATIN [Suspect]
     Indication: HEAD AND NECK CANCER
     Dosage: LAST DOSE PRIOR TO SAE 22/FEB/2012
     Dates: start: 20120111

REACTIONS (5)
  - HYPOMAGNESAEMIA [None]
  - LYMPHOPENIA [None]
  - DEEP VEIN THROMBOSIS [None]
  - WHITE BLOOD CELL COUNT DECREASED [None]
  - MUCOSAL INFLAMMATION [None]
